FAERS Safety Report 25847454 (Version 3)
Quarter: 2025Q4

REPORT INFORMATION
  Report Type: Spontaneous
  Country: US (occurrence: US)
  Receive Date: 20250925
  Receipt Date: 20251017
  Transmission Date: 20260118
  Serious: No
  Sender: BLUEPRINT MEDICINES
  Company Number: US-Blueprint Medicines Corporation-2025-AER-02061

PATIENT
  Age: 39 Year
  Sex: Female

DRUGS (1)
  1. AYVAKIT [Suspect]
     Active Substance: AVAPRITINIB
     Indication: Systemic mastocytosis
     Route: 048
     Dates: start: 20250918

REACTIONS (10)
  - Headache [Unknown]
  - Pain [Unknown]
  - Facial pain [Unknown]
  - Pain in extremity [Unknown]
  - Abdominal pain [Unknown]
  - Lip pain [Unknown]
  - Tenderness [Unknown]
  - Abdominal tenderness [Unknown]
  - Dizziness [Unknown]
  - Adverse drug reaction [Unknown]

NARRATIVE: CASE EVENT DATE: 20250928
